FAERS Safety Report 6713012-X (Version None)
Quarter: 2010Q2

REPORT INFORMATION
  Report Type: 
  Country: None (occurrence: None)
  Receive Date: 20100506
  Receipt Date: 20100426
  Transmission Date: 20101027
  Serious: Yes (Hospitalization)
  Sender: FDA-Public Use
  Company Number: RO-MPIJNJ-2010-02150

PATIENT

DRUGS (2)
  1. VELCADE [Suspect]
     Indication: PLASMACYTOMA
     Dosage: 1.1 MG/M2, UNK
     Route: 042
     Dates: start: 20100319
  2. DEXAMETHASONE [Concomitant]
     Indication: PLASMACYTOMA
     Dosage: 24 MG, UNK
     Route: 042
     Dates: start: 20100319

REACTIONS (1)
  - COLONIC OBSTRUCTION [None]
